FAERS Safety Report 26201845 (Version 1)
Quarter: 2025Q4

REPORT INFORMATION
  Report Type: Spontaneous
  Country: CN (occurrence: CN)
  Receive Date: 20251226
  Receipt Date: 20251226
  Transmission Date: 20260119
  Serious: Yes (Life-Threatening, Hospitalization, Other)
  Sender: MSN LABORATORIES PRIVATE LIMITED
  Company Number: CN-MSNLABS-2025MSNLIT03919

PATIENT

DRUGS (2)
  1. PACLITAXEL [Suspect]
     Active Substance: PACLITAXEL
     Indication: Thymoma
     Dosage: [135 MG/ M2] D1
     Route: 065
     Dates: start: 202302, end: 202304
  2. NEDAPLATIN [Concomitant]
     Active Substance: NEDAPLATIN
     Indication: Thymoma
     Dosage: 100 MG D1
     Route: 065
     Dates: start: 202302, end: 202304

REACTIONS (2)
  - Myocarditis [Unknown]
  - Thrombocytopenia [Unknown]

NARRATIVE: CASE EVENT DATE: 20230504
